FAERS Safety Report 6332876-5 (Version None)
Quarter: 2009Q3

REPORT INFORMATION
  Report Type: 
  Country: None (occurrence: None)
  Receive Date: 20090828
  Receipt Date: 20090820
  Transmission Date: 20100115
  Serious: Yes (Hospitalization)
  Sender: FDA-Public Use
  Company Number: ZA-ELI_LILLY_AND_COMPANY-ZA200908004656

PATIENT
  Age: 37 Year
  Sex: Female

DRUGS (4)
  1. HUMALOG MIX 75/25 [Suspect]
     Indication: DIABETES MELLITUS
     Dosage: 26 U, EACH MORNING
     Route: 065
     Dates: start: 20040101
  2. HUMALOG MIX 75/25 [Suspect]
     Dosage: 18 U, EACH EVENING
     Route: 065
     Dates: start: 20040101
  3. GLUCOPHAGE [Concomitant]
     Dosage: UNK, UNKNOWN
     Route: 065
  4. ANTIHYPERTENSIVES [Concomitant]
     Indication: BLOOD PRESSURE INCREASED
     Dosage: UNK, UNKNOWN
     Route: 065

REACTIONS (3)
  - BEREAVEMENT REACTION [None]
  - DEPRESSION [None]
  - RETINAL TEAR [None]
